FAERS Safety Report 10345777 (Version 3)
Quarter: 2014Q3

REPORT INFORMATION
  Report Type: Report from Study
  Country: JP (occurrence: JP)
  Receive Date: 20140728
  Receipt Date: 20140805
  Transmission Date: 20150326
  Serious: Yes (Death, Hospitalization)
  Sender: FDA-Public Use
  Company Number: JP-BAYER-2014-109610

PATIENT
  Age: 62 Year
  Sex: Female
  Weight: 58 kg

DRUGS (10)
  1. SELTOUCH [Concomitant]
     Active Substance: FELBINAC
     Dosage: 70 MG, PNR, PERCUTANEOUS
     Dates: start: 20140428
  2. DEPAS [Concomitant]
     Active Substance: ETIZOLAM
     Indication: PROPHYLAXIS
     Dosage: 0.5 MG, SID
     Route: 048
     Dates: start: 20110115, end: 20140606
  3. LYRICA [Concomitant]
     Active Substance: PREGABALIN
     Indication: ANAPLASTIC THYROID CANCER
     Dosage: 50,100 MG, BID
     Route: 048
     Dates: start: 20140428
  4. CALCITRIOL. [Concomitant]
     Active Substance: CALCITRIOL
     Indication: ANAPLASTIC THYROID CANCER
     Dosage: 1 ?G, SID
     Route: 048
     Dates: start: 20070727, end: 20140606
  5. NOVAMIN [Concomitant]
     Active Substance: PROCHLORPERAZINE MALEATE
     Indication: PROPHYLAXIS OF NAUSEA AND VOMITING
     Dosage: 5 MG, TID
     Route: 048
     Dates: start: 20140428
  6. THYRADIN-S [Concomitant]
     Active Substance: LEVOTHYROXINE
     Indication: ANAPLASTIC THYROID CANCER
     Dosage: 50 ?G, BID
     Route: 048
     Dates: start: 20070727
  7. TRAMACET [PARACETAMOL,TRAMADOL] [Concomitant]
     Indication: ANAPLASTIC THYROID CANCER
     Dosage: 1 TABLET, BID
     Route: 048
     Dates: start: 20140428
  8. SORAFENIB (RAF KINASE INHIBITOR) [Suspect]
     Active Substance: SORAFENIB
     Indication: ANAPLASTIC THYROID CANCER
     Dosage: 400 MG, BID
     Route: 048
     Dates: start: 20140607, end: 20140712
  9. ALFAROL [Concomitant]
     Active Substance: ALFACALCIDOL
     Indication: ANAPLASTIC THYROID CANCER
     Dosage: 1 ?G, SID
     Route: 048
     Dates: start: 20140608
  10. VOLTAREN [Concomitant]
     Active Substance: DICLOFENAC SODIUM
     Indication: ANAPLASTIC THYROID CANCER
     Dosage: 25 MG, PRN
     Route: 048
     Dates: start: 20140428

REACTIONS (1)
  - Disseminated intravascular coagulation [Fatal]

NARRATIVE: CASE EVENT DATE: 20140717
